FAERS Safety Report 6833799-5 (Version None)
Quarter: 2010Q3

REPORT INFORMATION
  Report Type: 
  Country: None (occurrence: None)
  Receive Date: 20100712
  Receipt Date: 20070329
  Transmission Date: 20110219
  Serious: No
  Sender: FDA-Public Use
  Company Number: US-PFIZER INC-2007025769

PATIENT
  Sex: Female
  Weight: 62.14 kg

DRUGS (6)
  1. CHANTIX [Suspect]
     Indication: SMOKING CESSATION THERAPY
     Route: 048
     Dates: start: 20070208, end: 20070101
  2. ACETYLSALICYLIC ACID [Concomitant]
  3. CALCIUM [Concomitant]
  4. TOPROL-XL [Concomitant]
     Indication: HYPERTENSION
  5. PROTONIX [Concomitant]
  6. WELCHOL [Concomitant]

REACTIONS (2)
  - INCREASED APPETITE [None]
  - TOBACCO USER [None]
